FAERS Safety Report 8808832 (Version 1)
Quarter: 2012Q4

REPORT INFORMATION
  Report Type: 
  Country: MX (occurrence: MX)
  Receive Date: 20120926
  Receipt Date: 20120926
  Transmission Date: 20130627
  Serious: Yes (Death)
  Sender: FDA-Public Use
  Company Number: MX-PFIZER INC-2012237693

PATIENT
  Age: 66 Year
  Sex: Male
  Weight: 42 kg

DRUGS (4)
  1. LYRICA [Suspect]
     Indication: PAIN
     Dosage: 75 mg, 2x/day
     Route: 048
  2. LYRICA [Suspect]
     Dosage: 150 mg, 2x/day
     Route: 048
     Dates: start: 201208, end: 20120918
  3. BUPRENORPHINE [Concomitant]
     Indication: BONE PAIN
     Dosage: 0.2 mg, 2x/day
     Route: 060
     Dates: start: 201206, end: 201208
  4. TRANSTEC TTS [Concomitant]
     Indication: BONE PAIN
     Dosage: 20 mg, alternate day every 3 days the patient changed the patch
     Route: 003
     Dates: start: 20120815, end: 20120918

REACTIONS (2)
  - Metastases to bone [Fatal]
  - Metastatic neoplasm [Fatal]
